FAERS Safety Report 12391451 (Version 1)
Quarter: 2016Q2

REPORT INFORMATION
  Report Type: Spontaneous
  Country: IT (occurrence: IT)
  Receive Date: 20160521
  Receipt Date: 20160521
  Transmission Date: 20160815
  Serious: Yes (Other)
  Sender: FDA-Public Use
  Company Number: IT-ROXANE LABORATORIES, INC.-2016-RO-00900RO

PATIENT
  Age: 44 Year
  Sex: Male

DRUGS (1)
  1. METHADONE HCL ORAL SOLUTION USP, 5 MG/5 ML [Suspect]
     Active Substance: METHADONE HYDROCHLORIDE
     Indication: DRUG WITHDRAWAL MAINTENANCE THERAPY
     Route: 042

REACTIONS (1)
  - Pulmonary granuloma [Recovered/Resolved]
